FAERS Safety Report 5513113-8 (Version None)
Quarter: 2007Q4

REPORT INFORMATION
  Report Type: 
  Country: None (occurrence: None)
  Receive Date: 20071108
  Receipt Date: 20071025
  Transmission Date: 20080405
  Serious: Yes (Hospitalization, Other)
  Sender: FDA-Public Use
  Company Number: URSO-2007-183

PATIENT
  Age: 24 Year
  Sex: Female

DRUGS (6)
  1. URSO? TABLETS (URSODEOXYCHOLIC ACID) [Suspect]
     Indication: LIVER DISORDER
     Dosage: 600 MG
     Route: 048
     Dates: start: 20070908, end: 20070927
  2. BEZATOL SR (BEZAFIBRATE) SINCE ABOUT JULY 2007 [Suspect]
     Indication: HYPERLIPIDAEMIA
     Dosage: 400 MG PER ORAL
     Route: 048
     Dates: start: 20070701
  3. ACYCLOVIR [Suspect]
     Indication: INFECTION PROPHYLAXIS
     Dosage: 500 MG IV
     Route: 042
     Dates: start: 20070914, end: 20070926
  4. KELNAC (PLAUNOTOL) [Concomitant]
  5. PREDNISOLONE [Concomitant]
  6. LEVOFLOXACIN [Concomitant]

REACTIONS (1)
  - AGRANULOCYTOSIS [None]
